FAERS Safety Report 19441111 (Version 1)
Quarter: 2021Q2

REPORT INFORMATION
  Report Type: Spontaneous
  Country: FR (occurrence: FR)
  Receive Date: 20210621
  Receipt Date: 20210621
  Transmission Date: 20210717
  Serious: Yes (Hospitalization)
  Sender: FDA-Public Use
  Company Number: FR-TEVA-2021-FR-1923338

PATIENT
  Age: 51 Year
  Sex: Male
  Weight: 67 kg

DRUGS (11)
  1. LANSOPRAZOLE. [Suspect]
     Active Substance: LANSOPRAZOLE
     Indication: PROPHYLAXIS AGAINST GASTROINTESTINAL ULCER
     Dosage: THERAPY END DATE ASKU, 30MG
     Route: 048
     Dates: start: 20210403
  2. AMOXICILLINE [Suspect]
     Active Substance: AMOXICILLIN
     Indication: ANTIBIOTIC PROPHYLAXIS
     Dosage: 3GM
     Dates: start: 20210415, end: 20210422
  3. MEROPENEM ANHYDRE [Suspect]
     Active Substance: MEROPENEM
     Indication: ANTIBIOTIC PROPHYLAXIS
     Dosage: 1GM
     Route: 042
     Dates: start: 20210401, end: 20210402
  4. CIPROFLOXACINE [Suspect]
     Active Substance: CIPROFLOXACIN
     Indication: ANTIBIOTIC PROPHYLAXIS
     Dosage: 400MG
     Route: 042
     Dates: start: 20210402, end: 20210406
  5. PROPOFOL. [Suspect]
     Active Substance: PROPOFOL
     Indication: SEDATION
     Dosage: 0.20 ML / HOUR
     Route: 042
     Dates: start: 20210401, end: 20210521
  6. IMIPENEM ANHYDRE [Suspect]
     Active Substance: IMIPENEM
     Indication: ANTIBIOTIC PROPHYLAXIS
     Dosage: 2GM
     Route: 042
     Dates: start: 20210420, end: 20210421
  7. ERTAPENEM. [Suspect]
     Active Substance: ERTAPENEM SODIUM
     Indication: ANTIBIOTIC PROPHYLAXIS
     Route: 042
     Dates: start: 20210331, end: 20210331
  8. SUFENTANIL [Suspect]
     Active Substance: SUFENTANIL
     Indication: SEDATION
     Dosage: 0.5 ML / HOUR
     Route: 042
     Dates: start: 20210401
  9. HEPARIN [Suspect]
     Active Substance: HEPARIN SODIUM
     Indication: THROMBOSIS PROPHYLAXIS
     Dosage: 6000IU
     Route: 058
     Dates: start: 20210316, end: 20210414
  10. INSULINE [Suspect]
     Active Substance: INSULIN NOS
     Indication: INSULIN THERAPY
     Dosage: 100 IU / ML DEPENDING ON BLOOD SUGAR
     Route: 058
     Dates: start: 20210406, end: 20210409
  11. IOMERON [Suspect]
     Active Substance: IOMEPROL
     Indication: COMPUTERISED TOMOGRAM
     Dosage: SINGLE DOSE, 400 MG IODINE / ML
     Route: 042
     Dates: start: 20210420, end: 20210420

REACTIONS (2)
  - Drug reaction with eosinophilia and systemic symptoms [Recovering/Resolving]
  - Rash morbilliform [Recovering/Resolving]

NARRATIVE: CASE EVENT DATE: 20210406
